FAERS Safety Report 17344198 (Version 1)
Quarter: 2020Q1

REPORT INFORMATION
  Report Type: Spontaneous
  Country: US (occurrence: US)
  Receive Date: 20200129
  Receipt Date: 20200129
  Transmission Date: 20200409
  Serious: No
  Sender: FDA-Public Use
  Company Number: US-ALLERGAN-1928716US

PATIENT
  Sex: Female
  Weight: 49.89 kg

DRUGS (6)
  1. BOTOX [Suspect]
     Active Substance: ONABOTULINUMTOXINA
     Dosage: UNK, SINGLE
     Dates: start: 1992, end: 1992
  2. BOTOX [Suspect]
     Active Substance: ONABOTULINUMTOXINA
     Indication: TORTICOLLIS
     Dosage: UNK, SINGLE
     Dates: start: 201904, end: 201904
  3. CHOLESTYRAMINE. [Concomitant]
     Active Substance: CHOLESTYRAMINE
     Indication: IRRITABLE BOWEL SYNDROME
     Dosage: UNK, PRN
  4. VITAMIN D [Concomitant]
     Active Substance: VITAMIN D NOS
     Dosage: 2000 UNITS
     Route: 048
  5. CRANBERRY PILLS [Concomitant]
     Indication: URINARY TRACT INFECTION
  6. PROPANOLOL [Concomitant]
     Active Substance: PROPRANOLOL HYDROCHLORIDE
     Indication: HYPERTENSION
     Dosage: 20 MG
     Route: 048
     Dates: start: 1999

REACTIONS (12)
  - Insomnia [Not Recovered/Not Resolved]
  - Therapy cessation [Unknown]
  - Head discomfort [Recovered/Resolved]
  - Headache [Unknown]
  - Feeding disorder [Unknown]
  - Muscle spasms [Not Recovered/Not Resolved]
  - Torticollis [Not Recovered/Not Resolved]
  - Tremor [Not Recovered/Not Resolved]
  - Impaired driving ability [Not Recovered/Not Resolved]
  - Neck pain [Unknown]
  - Fall [Recovered/Resolved]
  - Muscular weakness [Not Recovered/Not Resolved]
